FAERS Safety Report 5399346-2 (Version None)
Quarter: 2007Q3

REPORT INFORMATION
  Report Type: 
  Country: None (occurrence: None)
  Receive Date: 20070727
  Receipt Date: 20070723
  Transmission Date: 20080115
  Serious: Yes (Other)
  Sender: FDA-Public Use
  Company Number: PHBS2007HN12384

PATIENT
  Sex: Female

DRUGS (1)
  1. ZADITEN [Suspect]
     Indication: CONJUNCTIVITIS ALLERGIC
     Dosage: UNK, BID
     Dates: start: 20070713

REACTIONS (2)
  - CONJUNCTIVAL HAEMORRHAGE [None]
  - EPISTAXIS [None]
